FAERS Safety Report 7284844-7 (Version None)
Quarter: 2011Q1

REPORT INFORMATION
  Report Type: 
  Country: None (occurrence: None)
  Receive Date: 20110210
  Receipt Date: 20110129
  Transmission Date: 20110831
  Serious: Yes (Hospitalization, Other)
  Sender: FDA-Public Use
  Company Number: US-PAR PHARMACEUTICAL, INC-2011SCPR002666

PATIENT
  Age: 79 Year
  Sex: Male

DRUGS (5)
  1. METRONIDAZOLE [Suspect]
     Dosage: 500 MG, EVERY 8 HOURS
     Route: 042
  2. CIPROFLOXACIN HYDROCHLORIDE [Interacting]
     Indication: DIVERTICULITIS
     Dosage: UNK
     Route: 065
  3. METRONIDAZOLE [Suspect]
     Indication: DIVERTICULITIS
     Dosage: UNK
     Route: 065
  4. GLIMEPIRIDE [Interacting]
     Indication: TYPE 2 DIABETES MELLITUS
     Dosage: 1 MG, DAILY
     Route: 048
  5. PIPERACILLIN W/TAZOBACTAM          /01173601/ [Concomitant]
     Indication: DIVERTICULITIS
     Dosage: 2.25 G, EVERY 12 HOURS
     Route: 042

REACTIONS (6)
  - RENAL FAILURE ACUTE [None]
  - UNRESPONSIVE TO STIMULI [None]
  - DRUG INTERACTION [None]
  - LETHARGY [None]
  - HYPOGLYCAEMIA [None]
  - HYPOTENSION [None]
